FAERS Safety Report 9380328 (Version 7)
Quarter: 2013Q4

REPORT INFORMATION
  Report Type: Spontaneous
  Country: US (occurrence: US)
  Receive Date: 20130702
  Receipt Date: 20131209
  Transmission Date: 20140711
  Serious: Yes (Hospitalization)
  Sender: FDA-Public Use
  Company Number: US-GLAXOSMITHKLINE-A0905635A

PATIENT
  Age: 65 Year
  Sex: Female
  Weight: 109 kg

DRUGS (18)
  1. FLOLAN [Suspect]
     Indication: PULMONARY ARTERIAL HYPERTENSION
     Dosage: 40NGKM CONTINUOUS
     Route: 042
     Dates: start: 20090729
  2. MULTIVITAMIN [Concomitant]
  3. BUMEX [Concomitant]
     Dosage: 4MG TWICE PER DAY
     Route: 048
  4. CALCIUM + VITAMIN D [Concomitant]
     Dosage: 1TAB PER DAY
     Route: 048
  5. FERROUS SULFATE [Concomitant]
     Dosage: 325MG THREE TIMES PER DAY
     Route: 048
  6. HEPARIN [Concomitant]
  7. LEXAPRO [Concomitant]
     Dosage: 20MG PER DAY
     Route: 048
  8. MAGNESIUM [Concomitant]
     Dosage: 800MG PER DAY
     Route: 048
  9. METFORMIN [Concomitant]
     Dosage: 1000MG TWICE PER DAY
     Route: 048
  10. NEXIUM [Concomitant]
     Dosage: 40MG PER DAY
  11. OXYGEN [Concomitant]
  12. POTASSIUM CHLORIDE [Concomitant]
     Dosage: 60MEQ FOUR TIMES PER DAY
  13. PREDNISONE [Concomitant]
     Dosage: 10MG PER DAY
  14. TRACLEER [Concomitant]
     Dosage: 125MG TWICE PER DAY
     Route: 048
  15. ZOCOR [Concomitant]
     Dosage: 40MG PER DAY
  16. LOPERAMIDE [Concomitant]
  17. CALCIUM CARBONATE [Concomitant]
  18. BOSENTAN [Concomitant]

REACTIONS (11)
  - Cardiac failure [Unknown]
  - Enterobacter bacteraemia [Recovered/Resolved]
  - Device related sepsis [Recovered/Resolved]
  - Device leakage [Unknown]
  - Medical device complication [Recovered/Resolved]
  - Device occlusion [Recovered/Resolved]
  - Rash papular [Not Recovered/Not Resolved]
  - Diarrhoea [Not Recovered/Not Resolved]
  - Rhinorrhoea [Not Recovered/Not Resolved]
  - Pyrexia [Recovered/Resolved]
  - Chills [Recovered/Resolved]
